FAERS Safety Report 4729676-6 (Version None)
Quarter: 2005Q3

REPORT INFORMATION
  Report Type: 
  Country: None (occurrence: None)
  Receive Date: 20050801
  Receipt Date: 20050720
  Transmission Date: 20060218
  Serious: Yes (Hospitalization, Other)
  Sender: FDA-Public Use
  Company Number: US-MERCK-0507USA03245

PATIENT
  Age: 66 Year
  Sex: Female

DRUGS (6)
  1. VIOXX [Suspect]
     Indication: COMPLEX REGIONAL PAIN SYNDROME
     Route: 048
  2. CELEXA [Suspect]
     Indication: INSOMNIA
     Route: 065
     Dates: start: 20030619
  3. CELEBREX [Suspect]
     Indication: COMPLEX REGIONAL PAIN SYNDROME
     Route: 065
  4. ASPIRIN [Concomitant]
     Route: 065
  5. VITAMINS (UNSPECIFIED) [Concomitant]
     Route: 065
  6. CALCIUM (UNSPECIFIED) [Concomitant]
     Route: 065

REACTIONS (12)
  - CEREBRAL CYST [None]
  - CHEST PAIN [None]
  - DEEP VEIN THROMBOSIS [None]
  - DYSPNOEA [None]
  - HEAD INJURY [None]
  - HEADACHE [None]
  - MEMORY IMPAIRMENT [None]
  - MYOCARDIAL INFARCTION [None]
  - PALLOR [None]
  - PARAESTHESIA [None]
  - PARAESTHESIA ORAL [None]
  - SCAR [None]
